FAERS Safety Report 10738729 (Version 2)
Quarter: 2015Q1

REPORT INFORMATION
  Report Type: Spontaneous
  Country: JP (occurrence: JP)
  Receive Date: 20150126
  Receipt Date: 20150205
  Transmission Date: 20150721
  Serious: Yes (Death, Hospitalization)
  Sender: FDA-Public Use
  Company Number: JP-BAYER-2015-009788

PATIENT
  Age: 62 Year
  Sex: Male
  Weight: 81 kg

DRUGS (1)
  1. NEXAVAR [Suspect]
     Active Substance: SORAFENIB
     Indication: HEPATOCELLULAR CARCINOMA
     Dosage: UNK
     Route: 048
     Dates: start: 201101, end: 2011

REACTIONS (7)
  - Decreased appetite [Fatal]
  - Malaise [Fatal]
  - Purpura [Fatal]
  - Platelet count decreased [Fatal]
  - Pancytopenia [Fatal]
  - Blast cell crisis [Fatal]
  - Metastases to bone marrow [Fatal]
